FAERS Safety Report 8140918-X (Version None)
Quarter: 2012Q1

REPORT INFORMATION
  Report Type: 
  Country: None (occurrence: None)
  Receive Date: 20120216
  Receipt Date: 20120213
  Transmission Date: 20120608
  Serious: Yes (Death, Hospitalization, Other)
  Sender: FDA-Public Use
  Company Number: JP-BAYER-2012-014832

PATIENT
  Age: 79 Year
  Sex: Female

DRUGS (1)
  1. NEXAVAR [Suspect]
     Indication: HEPATIC NEOPLASM MALIGNANT
     Dosage: 400 MG, QD
     Route: 048
     Dates: start: 20120120, end: 20120130

REACTIONS (6)
  - VOMITING [None]
  - PALMAR-PLANTAR ERYTHRODYSAESTHESIA SYNDROME [None]
  - HEPATIC FAILURE [None]
  - BLOOD BILIRUBIN INCREASED [None]
  - AMMONIA INCREASED [None]
  - HAEMOGLOBIN DECREASED [None]
